FAERS Safety Report 5275467-X (Version None)
Quarter: 2007Q1

REPORT INFORMATION
  Report Type: 
  Country: None (occurrence: None)
  Receive Date: 20061213
  Receipt Date: 20050809
  Transmission Date: 20070707
  Serious: No
  Sender: FDA-Public Use
  Company Number: 2005UW11835

PATIENT
  Age: 16 Year
  Sex: Female
  Weight: 54.1 kg

DRUGS (10)
  1. SEROQUEL [Suspect]
     Indication: AGITATION
     Dosage: 25 MG QD PO
     Route: 048
     Dates: start: 20050205, end: 20050216
  2. SEROQUEL [Suspect]
     Indication: AGITATION
     Dosage: 50 MG QD PO
     Route: 048
     Dates: start: 20050217
  3. SEROQUEL [Suspect]
     Indication: AGITATION
     Dosage: 150 MG HS PO
     Route: 048
     Dates: end: 20050511
  4. SEROQUEL [Suspect]
     Indication: AGITATION
     Dosage: 200 MG HS PO
     Route: 048
     Dates: start: 20050512
  5. FLUOXETINE [Suspect]
     Indication: DEPRESSION
     Dosage: 10 MG QD PO
     Route: 048
     Dates: start: 20050127, end: 20050205
  6. FLUOXETINE [Suspect]
     Indication: DEPRESSION
     Dosage: 20 MG QD PO
     Route: 048
     Dates: start: 20050206, end: 20050101
  7. EFFEXOR XR [Concomitant]
  8. ZYRTEC [Concomitant]
  9. ALLEGRA [Concomitant]
  10. MINOCYCLINE HCL [Concomitant]

REACTIONS (2)
  - DRUG INEFFECTIVE [None]
  - SUICIDE ATTEMPT [None]
